FAERS Safety Report 5275211-6 (Version None)
Quarter: 2007Q1

REPORT INFORMATION
  Report Type: 
  Country: None (occurrence: None)
  Receive Date: 20061214
  Receipt Date: 20060921
  Transmission Date: 20070707
  Serious: Yes (Hospitalization)
  Sender: FDA-Public Use
  Company Number: 2006107467

PATIENT
  Age: 78 Year
  Sex: Male

DRUGS (4)
  1. METHYLPREDNISOLONE [Suspect]
     Indication: GOUT
     Dosage: (8 MG),ORAL
     Route: 048
  2. PIROXICAM [Suspect]
     Indication: GOUT
     Dosage: (20 MG),ORAL
     Route: 048
  3. AGGRENOX [Suspect]
     Indication: CEREBROVASCULAR ACCIDENT PROPHYLAXIS
     Dates: start: 20060217, end: 20060801
  4. PLACEBO (PLACEBO) [Suspect]
     Indication: CEREBROVASCULAR ACCIDENT PROPHYLAXIS
     Dates: start: 20060217, end: 20060801

REACTIONS (1)
  - GASTRIC ULCER PERFORATION [None]
